FAERS Safety Report 8646026 (Version 8)
Quarter: 2016Q4

REPORT INFORMATION
  Report Type: Spontaneous
  Country: US (occurrence: US)
  Receive Date: 20120702
  Receipt Date: 20161108
  Transmission Date: 20170207
  Serious: Yes (Hospitalization, Disabling, Other)
  Sender: FDA-Public Use
  Company Number: US-009507513-1206USA04715

PATIENT
  Sex: Female
  Weight: 68.27 kg

DRUGS (6)
  1. FOSAMAX [Suspect]
     Active Substance: ALENDRONATE SODIUM
     Indication: OSTEOPOROSIS
     Dosage: 70 MG, QW
     Route: 048
     Dates: end: 20101201
  2. FOSAMAX PLUS D [Suspect]
     Active Substance: ALENDRONATE SODIUM\CHOLECALCIFEROL
     Indication: PRODUCT USED FOR UNKNOWN INDICATION
     Dosage: 70 MG, UNKNOWN
     Route: 048
  3. FOSAMAX [Suspect]
     Active Substance: ALENDRONATE SODIUM
     Dosage: 10 MG, UNK
     Route: 048
     Dates: start: 19980301, end: 20101201
  4. ALENDRONATE SODIUM. [Suspect]
     Active Substance: ALENDRONATE SODIUM
     Dosage: 70 MG, UNK
  5. OS-CAL + D [Concomitant]
     Indication: OSTEOPENIA
     Dosage: 500 MG, BID
  6. VITAMINS (UNSPECIFIED) [Concomitant]
     Active Substance: VITAMINS
     Dosage: UNK

REACTIONS (81)
  - Atrial fibrillation [Not Recovered/Not Resolved]
  - Venous operation [Unknown]
  - Knee arthroplasty [Unknown]
  - Diastolic dysfunction [Unknown]
  - Electrocardiogram ST segment abnormal [Unknown]
  - Musculoskeletal stiffness [Unknown]
  - Sinus node dysfunction [Unknown]
  - Anaemia [Unknown]
  - Medical device pain [Unknown]
  - Nail hypertrophy [Unknown]
  - Hypotonia [Unknown]
  - Appendicectomy [Recovering/Resolving]
  - Cystocele [Unknown]
  - Skin abrasion [Unknown]
  - Tinnitus [Unknown]
  - Low turnover osteopathy [Unknown]
  - Atrial fibrillation [Unknown]
  - Cyst removal [Unknown]
  - Transfusion [Unknown]
  - Femoral hernia [Unknown]
  - Spinal osteoarthritis [Unknown]
  - Delirium [Unknown]
  - Pneumonia [Recovering/Resolving]
  - Atelectasis [Recovering/Resolving]
  - Peripheral venous disease [Unknown]
  - Trigger finger [Unknown]
  - Appendicitis [Recovering/Resolving]
  - Seborrhoeic keratosis [Recovered/Resolved]
  - Limb asymmetry [Unknown]
  - Diarrhoea [Unknown]
  - Femur fracture [Unknown]
  - Intramedullary rod insertion [Unknown]
  - Rib fracture [Unknown]
  - Rectocele [Unknown]
  - Cardiac disorder [Unknown]
  - Hypothyroidism [Unknown]
  - Thrombocytosis [Unknown]
  - Scoliosis [Unknown]
  - Nausea [Unknown]
  - Femur fracture [Unknown]
  - Tendon sheath incision [Unknown]
  - Cardiac murmur [Unknown]
  - Atrophic vulvovaginitis [Unknown]
  - Contusion [Unknown]
  - Fatigue [Not Recovered/Not Resolved]
  - Atrial septal defect [Unknown]
  - International normalised ratio increased [Recovered/Resolved]
  - Hypertension [Unknown]
  - Blood disorder [Unknown]
  - Intramedullary rod insertion [Unknown]
  - Osteoporosis [Unknown]
  - Tendon sheath incision [Unknown]
  - Limb operation [Unknown]
  - Sleep apnoea syndrome [Unknown]
  - Enterocele [Unknown]
  - Fatigue [Unknown]
  - Cyst [Unknown]
  - Ventricular extrasystoles [Unknown]
  - Inappropriate schedule of drug administration [Unknown]
  - Urinary incontinence [Unknown]
  - Cardiac failure [Unknown]
  - Asthenia [Unknown]
  - Femur fracture [Unknown]
  - Inguinal hernia repair [Unknown]
  - Transfusion [Unknown]
  - Pelvic floor muscle weakness [Unknown]
  - Thyroid disorder [Not Recovered/Not Resolved]
  - Varicose vein [Unknown]
  - Haemorrhoids [Unknown]
  - Osteoarthritis [Unknown]
  - White blood cell count increased [Unknown]
  - Constipation [Recovered/Resolved]
  - Stress fracture [Unknown]
  - Vaginoperineorrhaphy [Unknown]
  - Femoral hernia repair [Unknown]
  - Medical device removal [Unknown]
  - Hypoxia [Unknown]
  - Inguinal hernia [Unknown]
  - Diverticulitis [Unknown]
  - Inappropriate schedule of drug administration [Unknown]
  - Oedema peripheral [Unknown]

NARRATIVE: CASE EVENT DATE: 19980212
